FAERS Safety Report 9089213 (Version 1)
Quarter: 2013Q1

REPORT INFORMATION
  Report Type: Spontaneous
  Country: US (occurrence: US)
  Receive Date: 20130201
  Receipt Date: 20130201
  Transmission Date: 20140127
  Serious: Yes (Other)
  Sender: FDA-Public Use
  Company Number: US-PERRIGO-13US000840

PATIENT
  Sex: Female

DRUGS (1)
  1. LORATADINE 10 MG 612 [Suspect]
     Indication: PRODUCT USED FOR UNKNOWN INDICATION
     Dosage: UNK, UNK
     Route: 048

REACTIONS (2)
  - Myocardial infarction [Unknown]
  - Malaise [Unknown]
